FAERS Safety Report 9865437 (Version 2)
Quarter: 2014Q1

REPORT INFORMATION
  Report Type: Spontaneous
  Country: US (occurrence: US)
  Receive Date: 20140203
  Receipt Date: 20140203
  Transmission Date: 20141002
  Serious: No
  Sender: FDA-Public Use
  Company Number: US-ALLERGAN-1307524US

PATIENT
  Sex: Female

DRUGS (3)
  1. RESTASIS [Suspect]
     Indication: DRY EYE
     Dosage: 4 GTT, BID
     Route: 047
     Dates: start: 2010
  2. REFRESH OPTIVE [Suspect]
     Indication: PRODUCT USED FOR UNKNOWN INDICATION
     Dosage: UNK
     Dates: end: 201303
  3. GENTEAL                            /00445101/ [Concomitant]
     Indication: PRODUCT USED FOR UNKNOWN INDICATION

REACTIONS (6)
  - Abnormal sensation in eye [Recovered/Resolved]
  - Abnormal sensation in eye [Recovered/Resolved]
  - Incorrect dose administered [Unknown]
  - Overdose [Unknown]
  - Wrong technique in drug usage process [Unknown]
  - Eye irritation [Recovered/Resolved]
